FAERS Safety Report 20907557 (Version 2)
Quarter: 2022Q2

REPORT INFORMATION
  Report Type: Spontaneous
  Country: CA (occurrence: CA)
  Receive Date: 20220602
  Receipt Date: 20220614
  Transmission Date: 20220720
  Serious: Yes (Death, Life-Threatening, Hospitalization, Other)
  Sender: FDA-Public Use
  Company Number: CA-PFIZER INC-202200760111

PATIENT
  Age: 13 Year
  Sex: Male

DRUGS (2)
  1. NIVESTYM [Suspect]
     Active Substance: FILGRASTIM-AAFI
     Indication: T-cell lymphoma
     Dosage: 193 UG, ONCE DAILY FOR 7 TO 10 DAYS (10 OR MORE REPEATS)
     Route: 058
     Dates: start: 20220519, end: 20220528
  2. NIVESTYM [Suspect]
     Active Substance: FILGRASTIM-AAFI
     Indication: Neutropenia

REACTIONS (7)
  - Septic shock [Fatal]
  - Colitis [Fatal]
  - Multiple organ dysfunction syndrome [Fatal]
  - Cardiopulmonary failure [Fatal]
  - Diarrhoea [Unknown]
  - Abdominal distension [Unknown]
  - Pyrexia [Unknown]

NARRATIVE: CASE EVENT DATE: 20220501
